FAERS Safety Report 6011856-3 (Version None)
Quarter: 2008Q4

REPORT INFORMATION
  Report Type: 
  Country: None (occurrence: None)
  Receive Date: 20081218
  Receipt Date: 20081211
  Transmission Date: 20090506
  Serious: Yes (Hospitalization, Other)
  Sender: FDA-Public Use
  Company Number: GB-PFIZER INC-2008155455

PATIENT

DRUGS (2)
  1. BLINDED *PLACEBO [Suspect]
     Indication: BREAST CANCER
     Dosage: UNK
     Route: 048
  2. BLINDED CELECOXIB [Suspect]
     Indication: BREAST CANCER
     Dosage: UNK
     Route: 048

REACTIONS (1)
  - BREAST CANCER RECURRENT [None]
